FAERS Safety Report 7605427-2 (Version None)
Quarter: 2011Q3

REPORT INFORMATION
  Report Type: 
  Country: None (occurrence: None)
  Receive Date: 20110705
  Receipt Date: 20110624
  Transmission Date: 20111222
  Serious: Yes (Other)
  Sender: FDA-Public Use
  Company Number: GB-ACCORD-009663

PATIENT
  Age: 7 Year
  Sex: Male

DRUGS (6)
  1. ETOPOSIDE [Suspect]
     Indication: RHABDOMYOSARCOMA
     Dosage: 1176.00-MG
  2. VINCRISTINE [Suspect]
     Indication: RHABDOMYOSARCOMA
     Dosage: 10.92-MG
  3. IFOSFAMIDE [Suspect]
     Indication: RHABDOMYOSARCOMA
  4. DACTINOMYCIN [Suspect]
     Indication: RHABDOMYOSARCOMA
     Dosage: 2.52-MG / INTRAVENOUS (NOT OTHERWISE SPECIFIED)
     Route: 042
  5. EPIRUBICIN HYDROCHLORIDE [Suspect]
     Indication: RHABDOMYOSARCOMA
     Dosage: 840.00-MG
  6. CARBOPLATIN [Suspect]
     Indication: RHABDOMYOSARCOMA
     Dosage: 840.00-MG

REACTIONS (1)
  - THYROID CANCER [None]
